FAERS Safety Report 11125419 (Version 1)
Quarter: 2015Q2

REPORT INFORMATION
  Report Type: Report from Study
  Country: CA (occurrence: CA)
  Receive Date: 20150520
  Receipt Date: 20150520
  Transmission Date: 20150821
  Serious: Yes (Other)
  Sender: FDA-Public Use
  Company Number: PHHY2013CA083982

PATIENT
  Age: 45 Year
  Sex: Male

DRUGS (1)
  1. GLEEVEC [Suspect]
     Active Substance: IMATINIB MESYLATE
     Indication: GASTROINTESTINAL STROMAL TUMOUR
     Dosage: 400 MG, QD
     Route: 048
     Dates: start: 20130710

REACTIONS (13)
  - Foot fracture [Unknown]
  - Swelling face [Recovered/Resolved]
  - Back pain [Unknown]
  - Radiation associated pain [Unknown]
  - Periorbital oedema [Recovering/Resolving]
  - Accident [Unknown]
  - Chromaturia [Recovered/Resolved]
  - Abdominal distension [Unknown]
  - Dyspepsia [Recovered/Resolved]
  - Burning sensation [Unknown]
  - Abdominal discomfort [Unknown]
  - Rash [Recovered/Resolved]
  - Abdominal pain [Unknown]

NARRATIVE: CASE EVENT DATE: 20130720
